FAERS Safety Report 8392933-9 (Version None)
Quarter: 2012Q2

REPORT INFORMATION
  Report Type: 
  Country: None (occurrence: None)
  Receive Date: 20120529
  Receipt Date: 20120522
  Transmission Date: 20120825
  Serious: No
  Sender: FDA-Public Use
  Company Number: US-PFIZER INC-2012091307

PATIENT
  Sex: Male
  Weight: 97.506 kg

DRUGS (3)
  1. CARDURA [Suspect]
     Indication: BENIGN PROSTATIC HYPERPLASIA
     Dosage: ONCE DAILY
     Route: 048
  2. FLOMAX [Suspect]
     Indication: BENIGN PROSTATIC HYPERPLASIA
     Dosage: 0.4, ONCE DAILY
     Route: 048
     Dates: end: 20120201
  3. FLOMAX [Suspect]
     Dosage: UNK

REACTIONS (2)
  - SEXUAL DYSFUNCTION [None]
  - LIBIDO DECREASED [None]
